FAERS Safety Report 7562395-X (Version None)
Quarter: 2011Q2

REPORT INFORMATION
  Report Type: 
  Country: None (occurrence: None)
  Receive Date: 20110614
  Receipt Date: 20110601
  Transmission Date: 20111010
  Serious: Yes (Other)
  Sender: FDA-Public Use
  Company Number: 2011MA006655

PATIENT
  Age: 46 Year
  Sex: Female

DRUGS (1)
  1. PHENYTOIN [Suspect]
     Indication: EPILEPSY

REACTIONS (3)
  - HEPATIC ADENOMA [None]
  - NAUSEA [None]
  - MUSCULOSKELETAL PAIN [None]
